FAERS Safety Report 11192465 (Version 1)
Quarter: 2015Q2

REPORT INFORMATION
  Report Type: Spontaneous
  Country: US (occurrence: US)
  Receive Date: 20150616
  Receipt Date: 20150616
  Transmission Date: 20150821
  Serious: No
  Sender: FDA-Public Use
  Company Number: US-PERNIX THERAPEUTICS-2014SO000010

PATIENT

DRUGS (2)
  1. VERAMYST [Concomitant]
     Active Substance: FLUTICASONE FUROATE
  2. TREXIMET [Suspect]
     Active Substance: NAPROXEN SODIUM\SUMATRIPTAN SUCCINATE
     Indication: MIGRAINE
     Dosage: 85/500 MG
     Route: 048
     Dates: start: 20120126

REACTIONS (4)
  - Joint injury [Not Recovered/Not Resolved]
  - Neck injury [Not Recovered/Not Resolved]
  - Pain [Not Recovered/Not Resolved]
  - Hypoaesthesia [Not Recovered/Not Resolved]

NARRATIVE: CASE EVENT DATE: 20130408
